FAERS Safety Report 10689191 (Version 1)
Quarter: 2015Q1

REPORT INFORMATION
  Report Type: Spontaneous
  Country: IT (occurrence: IT)
  Receive Date: 20150105
  Receipt Date: 20150105
  Transmission Date: 20150720
  Serious: Yes (Other)
  Sender: FDA-Public Use
  Company Number: IT-009507513-1412ITA013224

PATIENT
  Age: 54 Year
  Sex: Male

DRUGS (4)
  1. PEGINTRON [Suspect]
     Active Substance: PEGINTERFERON ALFA-2B
     Indication: HEPATIC CIRRHOSIS
     Dosage: 120MCG, QW
     Route: 058
     Dates: start: 20140203, end: 20140729
  2. REBETOL [Concomitant]
     Active Substance: RIBAVIRIN
     Indication: HEPATIC CIRRHOSIS
     Dosage: TOTAL DAILY DOSE 1200 MG
     Route: 048
     Dates: start: 20140203, end: 20140429
  3. VICTRELIS [Suspect]
     Active Substance: BOCEPREVIR
     Indication: HEPATIC CIRRHOSIS
     Dosage: TOTAL DAILY DOSE 2400MG
     Route: 048
     Dates: start: 20140302, end: 20140729
  4. INSULIN [Concomitant]
     Active Substance: INSULIN NOS
     Indication: DIABETES MELLITUS

REACTIONS (1)
  - Rectal prolapse [Recovering/Resolving]

NARRATIVE: CASE EVENT DATE: 20140729
